FAERS Safety Report 24415536 (Version 1)
Quarter: 2024Q4

REPORT INFORMATION
  Report Type: Spontaneous
  Country: CN (occurrence: CN)
  Receive Date: 20241009
  Receipt Date: 20241009
  Transmission Date: 20250114
  Serious: Yes (Hospitalization, Other)
  Sender: SANOFI AVENTIS
  Company Number: CN-SA-2024SA286643

PATIENT
  Age: 85 Year
  Sex: Male
  Weight: 51 kg

DRUGS (4)
  1. HYDROCHLOROTHIAZIDE\IRBESARTAN [Suspect]
     Active Substance: HYDROCHLOROTHIAZIDE\IRBESARTAN
     Indication: Blood pressure increased
     Dosage: 2 DF, QD
     Route: 048
     Dates: start: 20240901, end: 20240914
  2. SULFAMETHOXAZOLE [Suspect]
     Active Substance: SULFAMETHOXAZOLE
     Indication: Pneumocystis jirovecii infection
     Dosage: 3 DF, TID
     Route: 048
     Dates: start: 20240909, end: 20240914
  3. CATEQUENTINIB DIHYDROCHLORIDE [Suspect]
     Active Substance: CATEQUENTINIB DIHYDROCHLORIDE
     Indication: Targeted cancer therapy
     Dosage: 10 MG, QD
     Route: 048
     Dates: start: 20240901, end: 20240914
  4. LORATADINE [Concomitant]
     Active Substance: LORATADINE
     Indication: Antiallergic therapy
     Dosage: 10 ML, QD
     Route: 048
     Dates: start: 20240914, end: 20240916

REACTIONS (4)
  - Pneumocystis jirovecii infection [Recovering/Resolving]
  - Eosinophil count increased [Recovering/Resolving]
  - Hyperkalaemia [Recovering/Resolving]
  - Hepatic function abnormal [Recovering/Resolving]

NARRATIVE: CASE EVENT DATE: 20240909
